FAERS Safety Report 14077555 (Version 3)
Quarter: 2017Q4

REPORT INFORMATION
  Report Type: Report from Study
  Country: TW (occurrence: TW)
  Receive Date: 20171012
  Receipt Date: 20171110
  Transmission Date: 20180321
  Serious: Yes (Hospitalization)
  Sender: FDA-Public Use
  Company Number: TW-ROCHE-1988282

PATIENT
  Age: 49 Year
  Sex: Male
  Weight: 62.65 kg

DRUGS (5)
  1. RO 5137382 (ANTI-GPC3 MAB) [Suspect]
     Active Substance: CODRITUZUMAB
     Indication: HEPATOCELLULAR CARCINOMA
     Dosage: C1D1,4,8,15,22 PLUS QWK?ON 18/AUG/2017, MOST RECENT DOSE PRIOR TO EVENT.
     Route: 042
     Dates: start: 20170804, end: 20170818
  2. ATEZOLIZUMAB. [Suspect]
     Active Substance: ATEZOLIZUMAB
     Route: 042
     Dates: start: 20171013
  3. RO 5137382 (ANTI-GPC3 MAB) [Suspect]
     Active Substance: CODRITUZUMAB
     Route: 042
     Dates: start: 20171006
  4. ATEZOLIZUMAB. [Suspect]
     Active Substance: ATEZOLIZUMAB
     Indication: HEPATOCELLULAR CARCINOMA
     Route: 042
     Dates: start: 20170811, end: 20170918
  5. NAPROXEN. [Suspect]
     Active Substance: NAPROXEN
     Indication: PRODUCT USED FOR UNKNOWN INDICATION
     Route: 065
     Dates: start: 20170918

REACTIONS (3)
  - Tonsillitis [Recovered/Resolved]
  - Upper gastrointestinal haemorrhage [Recovered/Resolved]
  - Upper gastrointestinal haemorrhage [Recovered/Resolved]

NARRATIVE: CASE EVENT DATE: 20170822
